FAERS Safety Report 7067355-3 (Version None)
Quarter: 2010Q4

REPORT INFORMATION
  Report Type: 
  Country: None (occurrence: None)
  Receive Date: 20101022
  Receipt Date: 20101022
  Transmission Date: 20110411
  Serious: Yes (Hospitalization)
  Sender: FDA-Public Use
  Company Number: None

PATIENT
  Sex: Female
  Weight: 88 kg

DRUGS (4)
  1. CISPLATIN [Suspect]
     Dosage: 100 MG
     Dates: end: 20101014
  2. TAXOL [Suspect]
     Dosage: 350 MG
     Dates: end: 20101014
  3. COLACE [Concomitant]
  4. DURAGESIC-100 [Concomitant]

REACTIONS (2)
  - ABDOMINAL PAIN [None]
  - BACK PAIN [None]
